FAERS Safety Report 5669446-8 (Version None)
Quarter: 2008Q1

REPORT INFORMATION
  Report Type: 
  Country: None (occurrence: None)
  Receive Date: 20080317
  Receipt Date: 20080310
  Transmission Date: 20080703
  Serious: Yes (Other)
  Sender: FDA-Public Use
  Company Number: B0500860A

PATIENT
  Age: 13 Year
  Sex: Male
  Weight: 46.5 kg

DRUGS (7)
  1. FLIXOTIDE [Suspect]
     Indication: ASTHMA
     Route: 065
  2. HYDROCORTISONE [Concomitant]
     Dosage: 5MG THREE TIMES PER DAY
  3. FLUDROCORTISONE ACETATE [Concomitant]
     Dosage: .1MG PER DAY
  4. SERETIDE [Concomitant]
     Dosage: 1PUFF TWICE PER DAY
  5. AEROCHAMBER [Concomitant]
  6. MONTELUKAST SODIUM [Concomitant]
     Dosage: 5MG AT NIGHT
  7. ALBUTEROL [Concomitant]

REACTIONS (5)
  - ADRENAL SUPPRESSION [None]
  - ASTHMA [None]
  - BACK PAIN [None]
  - BRONCHOPULMONARY ASPERGILLOSIS ALLERGIC [None]
  - COUGH [None]
